FAERS Safety Report 11285041 (Version 1)
Quarter: 2015Q3

REPORT INFORMATION
  Report Type: Spontaneous
  Country: CH (occurrence: CH)
  Receive Date: 20150720
  Receipt Date: 20150720
  Transmission Date: 20151125
  Serious: Yes (Hospitalization, Other)
  Sender: FDA-Public Use
  Company Number: CH-TEVA-577070ISR

PATIENT
  Age: 44 Year
  Sex: Female

DRUGS (7)
  1. DAFALGAN [Suspect]
     Active Substance: ACETAMINOPHEN
     Dosage: RESERVE THERAPY OF MAX. 500MG TID
     Route: 048
     Dates: start: 20150218, end: 20150405
  2. IMPORTAL [Concomitant]
     Active Substance: LACTITOL
     Route: 048
     Dates: start: 20150222, end: 20150327
  3. TORASEMID [Suspect]
     Active Substance: TORSEMIDE
     Dosage: 5 MILLIGRAM DAILY;
     Route: 048
     Dates: start: 20150226, end: 20150327
  4. ZOLPIDEM [Concomitant]
     Active Substance: ZOLPIDEM\ZOLPIDEM TARTRATE
     Dosage: 10 MILLIGRAM DAILY;
     Route: 048
     Dates: start: 20150218
  5. ALDACTONE [Suspect]
     Active Substance: SPIRONOLACTONE
     Dosage: WITH A PROGRESSIVE INCREASE UP TO THE DOSE OF 100MG OD
     Route: 048
     Dates: start: 20150221, end: 20150405
  6. NOROXIN [Suspect]
     Active Substance: NORFLOXACIN
     Dosage: 800 MILLIGRAM DAILY;
     Route: 048
     Dates: start: 20150304, end: 20150325
  7. NEXIUM [Suspect]
     Active Substance: ESOMEPRAZOLE MAGNESIUM
     Dosage: 80 MILLIGRAM DAILY;
     Route: 040
     Dates: start: 20150216, end: 20150217

REACTIONS (3)
  - Pyrexia [Recovered/Resolved]
  - Skin necrosis [Recovered/Resolved]
  - Stevens-Johnson syndrome [Recovered/Resolved]

NARRATIVE: CASE EVENT DATE: 20150320
